FAERS Safety Report 9952569 (Version 1)
Quarter: 2014Q1

REPORT INFORMATION
  Report Type: Spontaneous
  Country: US (occurrence: US)
  Receive Date: 20140304
  Receipt Date: 20140304
  Transmission Date: 20141002
  Serious: No
  Sender: FDA-Public Use
  Company Number: US-AMGEN-USASP2013076466

PATIENT
  Age: 48 Year
  Sex: Male
  Weight: 124.72 kg

DRUGS (7)
  1. ENBREL [Suspect]
     Indication: PRODUCT USED FOR UNKNOWN INDICATION
     Dosage: 50 MG, QWK
     Route: 058
  2. METFORMIN [Concomitant]
     Dosage: 500 MG, UNK
  3. LANTUS [Concomitant]
     Dosage: 100/ML, UNK
  4. ATORVASTATIN [Concomitant]
     Dosage: 20 MG, UNK
  5. LOSARTAN POTASSIUM [Concomitant]
     Dosage: 25 MG, UNK
  6. ASPIRIN [Concomitant]
     Dosage: 81 MG, UNK
  7. ZANTAC [Concomitant]
     Dosage: 75 MG, UNK

REACTIONS (4)
  - Dizziness [Unknown]
  - Hypoaesthesia [Unknown]
  - Headache [Unknown]
  - Paraesthesia [Unknown]
